FAERS Safety Report 26170508 (Version 1)
Quarter: 2025Q4

REPORT INFORMATION
  Report Type: Spontaneous
  Country: US (occurrence: None)
  Receive Date: 20251217
  Receipt Date: 20251217
  Transmission Date: 20260117
  Serious: Yes (Hospitalization)
  Sender: FDA-CTU
  Company Number: None

PATIENT
  Age: 92 Year
  Sex: Male

DRUGS (3)
  1. VYNDAMAX [Suspect]
     Active Substance: TAFAMIDIS
     Indication: Cardiomyopathy
     Dosage: TAKE 1 CAPSULE (61 MG) BY MOUTH DAILY.
     Route: 048
     Dates: start: 20251120
  2. FERROUS SULFATE [Concomitant]
     Active Substance: FERROUS SULFATE
  3. lv1rAMIN B-12 [Concomitant]

REACTIONS (2)
  - Weight increased [None]
  - Dehydration [None]

NARRATIVE: CASE EVENT DATE: 20251215
